FAERS Safety Report 6571576-3 (Version None)
Quarter: 2010Q1

REPORT INFORMATION
  Report Type: 
  Country: None (occurrence: None)
  Receive Date: 20100205
  Receipt Date: 20100105
  Transmission Date: 20100710
  Serious: Yes (Death)
  Sender: FDA-Public Use
  Company Number: US-TYCO HEALTHCARE/MALLINCKRODT-T201000149

PATIENT
  Age: 19 Year
  Sex: Female

DRUGS (5)
  1. OXYCODONE HCL [Suspect]
     Dosage: UNK
  2. BENZODIAZEPINE DERIVATIVES [Suspect]
     Dosage: UNK
  3. CITALOPRAM [Suspect]
     Dosage: UNK
  4. ACETAMINOPHEN [Suspect]
     Dosage: UNK
  5. MARIJUANA [Suspect]
     Dosage: UNK

REACTIONS (1)
  - CARDIO-RESPIRATORY ARREST [None]
